FAERS Safety Report 13706910 (Version 1)
Quarter: 2017Q2

REPORT INFORMATION
  Report Type: Spontaneous
  Country: PE (occurrence: PE)
  Receive Date: 20170630
  Receipt Date: 20170630
  Transmission Date: 20170830
  Serious: Yes (Hospitalization, Other)
  Sender: FDA-Public Use
  Company Number: PE-APOTEX-2017AP013749

PATIENT

DRUGS (1)
  1. SEROXAT FILM-COATED TABLET [Suspect]
     Active Substance: PAROXETINE HYDROCHLORIDE
     Indication: DEPRESSION
     Dosage: 20 MG, QD
     Route: 048
     Dates: start: 200909

REACTIONS (2)
  - Ligament operation [Unknown]
  - Fall [Unknown]

NARRATIVE: CASE EVENT DATE: 201705
